FAERS Safety Report 4941072-5 (Version None)
Quarter: 2006Q1

REPORT INFORMATION
  Report Type: 
  Country: None (occurrence: None)
  Receive Date: 20060310
  Receipt Date: 20060310
  Transmission Date: 20060701
  Serious: Yes (Hospitalization)
  Sender: FDA-Public Use
  Company Number: None

PATIENT
  Age: 72 Year
  Sex: Male
  Weight: 56.246 kg

DRUGS (2)
  1. WARFARIN SODIUM [Suspect]
     Dosage: 2.5MG  DAILY  PO
     Route: 048
     Dates: start: 20060202, end: 20060303
  2. UNKNOWN ANTIBIOTIC [Suspect]
     Dates: start: 20060205, end: 20060215

REACTIONS (9)
  - ABNORMAL FAECES [None]
  - DEPRESSION [None]
  - DIARRHOEA [None]
  - DRUG TOXICITY [None]
  - FLUID INTAKE REDUCED [None]
  - MALNUTRITION [None]
  - ORAL INTAKE REDUCED [None]
  - URINARY TRACT INFECTION [None]
  - UROSEPSIS [None]
